FAERS Safety Report 6993944-8 (Version None)
Quarter: 2010Q3

REPORT INFORMATION
  Report Type: 
  Country: None (occurrence: None)
  Receive Date: 20100917
  Receipt Date: 20100202
  Transmission Date: 20110219
  Serious: No
  Sender: FDA-Public Use
  Company Number: US-ASTRAZENECA-2007UW16847

PATIENT
  Age: 28 Year
  Sex: Female
  Weight: 99.8 kg

DRUGS (38)
  1. SEROQUEL [Suspect]
     Indication: EMOTIONAL DISORDER
     Route: 048
     Dates: start: 20000901, end: 20040701
  2. SEROQUEL [Suspect]
     Indication: DEPRESSION
     Route: 048
     Dates: start: 20000901, end: 20040701
  3. SEROQUEL [Suspect]
     Indication: PSYCHOTIC DISORDER
     Route: 048
     Dates: start: 20000901, end: 20040701
  4. SEROQUEL [Suspect]
     Route: 048
     Dates: start: 20000906
  5. SEROQUEL [Suspect]
     Route: 048
     Dates: start: 20000906
  6. SEROQUEL [Suspect]
     Route: 048
     Dates: start: 20000906
  7. SEROQUEL [Suspect]
     Route: 048
     Dates: start: 20010101, end: 20050101
  8. SEROQUEL [Suspect]
     Route: 048
     Dates: start: 20010101, end: 20050101
  9. SEROQUEL [Suspect]
     Route: 048
     Dates: start: 20010101, end: 20050101
  10. SEROQUEL [Suspect]
     Route: 048
     Dates: start: 20011001
  11. SEROQUEL [Suspect]
     Route: 048
     Dates: start: 20011001
  12. SEROQUEL [Suspect]
     Route: 048
     Dates: start: 20011001
  13. RISPERDAL [Concomitant]
     Indication: EMOTIONAL DISORDER
     Dates: start: 19990501, end: 20000601
  14. RISPERDAL [Concomitant]
     Indication: SCHIZOAFFECTIVE DISORDER
     Dates: start: 19990501, end: 20000601
  15. RISPERDAL [Concomitant]
     Route: 048
     Dates: start: 19990513, end: 20010101
  16. RISPERDAL [Concomitant]
     Route: 048
     Dates: start: 19990513, end: 20010101
  17. RISPERDAL [Concomitant]
     Dates: start: 20000406
  18. RISPERDAL [Concomitant]
     Dates: start: 20000406
  19. ZYPREXA [Concomitant]
     Indication: EMOTIONAL DISORDER
     Dates: start: 20000701, end: 20000901
  20. ZYPREXA [Concomitant]
     Indication: SCHIZOAFFECTIVE DISORDER
     Dates: start: 20000701, end: 20000901
  21. ZYPREXA [Concomitant]
     Route: 048
     Dates: start: 19980101, end: 19990101
  22. ZYPREXA [Concomitant]
     Route: 048
     Dates: start: 19980101, end: 19990101
  23. ZYPREXA [Concomitant]
     Dates: start: 20000701
  24. ZYPREXA [Concomitant]
     Dates: start: 20000701
  25. ZYPREXA [Concomitant]
     Dates: start: 20000701
  26. ZYPREXA [Concomitant]
     Dates: start: 20000701
  27. HALOPERIDOL [Concomitant]
     Dates: start: 20060101
  28. CLONAZEPAM [Concomitant]
     Indication: ANXIETY
     Dates: start: 20010406
  29. CLONAZEPAM [Concomitant]
     Route: 048
     Dates: start: 20011001
  30. COGENTIN [Concomitant]
     Indication: ADVERSE DRUG REACTION
     Route: 048
     Dates: start: 20011001
  31. TERAZOL 1 [Concomitant]
     Route: 048
     Dates: start: 20020228
  32. ACTOS [Concomitant]
     Route: 048
     Dates: start: 20030424
  33. ZOCOR [Concomitant]
     Route: 048
     Dates: start: 20041213
  34. LEVAQUIN [Concomitant]
     Route: 048
     Dates: start: 20050316
  35. HALDOL [Concomitant]
     Indication: PSYCHOTIC DISORDER
     Dosage: 150 MG - 175 MG
     Route: 048
     Dates: start: 20041213
  36. ZANTAC [Concomitant]
     Indication: GASTROOESOPHAGEAL REFLUX DISEASE
     Route: 048
     Dates: start: 20041213
  37. ZOLOFT [Concomitant]
     Dates: start: 20000406
  38. DUONEBS [Concomitant]
     Route: 055
     Dates: start: 20041227

REACTIONS (7)
  - BLOOD CHOLESTEROL INCREASED [None]
  - DIABETES MELLITUS [None]
  - GESTATIONAL DIABETES [None]
  - HYPERCHOLESTEROLAEMIA [None]
  - HYPERGLYCAEMIA [None]
  - HYPERLIPIDAEMIA [None]
  - TYPE 2 DIABETES MELLITUS [None]
